FAERS Safety Report 8143962-1 (Version None)
Quarter: 2012Q1

REPORT INFORMATION
  Report Type: 
  Country: None (occurrence: None)
  Receive Date: 20120217
  Receipt Date: 20120217
  Transmission Date: 20120608
  Serious: Yes (Other)
  Sender: FDA-Public Use
  Company Number: None

PATIENT
  Sex: Female

DRUGS (8)
  1. COATED BABY ASPIRIN [Concomitant]
  2. METOPROLOL SUCCINATE [Concomitant]
  3. ACETAZOLAMIDE [Concomitant]
     Indication: INTRAOCULAR PRESSURE INCREASED
     Dosage: 1 TABLET
     Route: 048
     Dates: start: 20101224, end: 20110214
  4. LOVASTATIN [Concomitant]
  5. LISINOPRIL [Concomitant]
  6. METFORMIN HCL [Concomitant]
     Route: 048
  7. AMLODIPINE BESYLATE [Concomitant]
  8. ACETAZOLAMIDE [Suspect]
     Indication: CATARACT OPERATION
     Dosage: 1 TABLET
     Route: 048
     Dates: start: 20101209, end: 20101223

REACTIONS (4)
  - BLINDNESS UNILATERAL [None]
  - GASTRIC DISORDER [None]
  - NO THERAPEUTIC RESPONSE [None]
  - MACULAR DEGENERATION [None]
